FAERS Safety Report 15357115 (Version 1)
Quarter: 2018Q3

REPORT INFORMATION
  Report Type: Spontaneous
  Country: US (occurrence: US)
  Receive Date: 20180830
  Receipt Date: 20180830
  Transmission Date: 20181010
  Serious: No
  Sender: FDA-Public Use
  Company Number: None

PATIENT
  Age: 67 Year
  Sex: Female

DRUGS (40)
  1. OXYBUTYNIN. [Concomitant]
     Active Substance: OXYBUTYNIN CHLORIDE
  2. FISH OIL [Concomitant]
     Active Substance: FISH OIL
  3. DIABETIC TUSSIN DM [Concomitant]
     Active Substance: DEXTROMETHORPHAN HYDROBROMIDE\GUAIFENESIN
  4. HYDROCORTISONE TOPICAL CREAM [Concomitant]
  5. LACTULOSE ORAL SOLN [Concomitant]
  6. LIPITOR [Concomitant]
     Active Substance: ATORVASTATIN CALCIUM
  7. SANTYL TOPICAL OINTMENT [Concomitant]
  8. CALCIUM CITRATE?VITAMIN D3 [Concomitant]
  9. AXCORBIC ACID [Concomitant]
  10. DIGOXIN. [Concomitant]
     Active Substance: DIGOXIN
  11. LOSARTAN. [Concomitant]
     Active Substance: LOSARTAN
  12. ISOSORB AF [Concomitant]
  13. BETAMETHASONE TOPICAL CREAM [Concomitant]
  14. VITAMIN B12 [Concomitant]
     Active Substance: CYANOCOBALAMIN
  15. CLOTRIMAZOLE TOPICAL CREAM [Concomitant]
  16. PSYLLIUM FIBER CAPS [Concomitant]
  17. METFORMIN [Concomitant]
     Active Substance: METFORMIN HYDROCHLORIDE
  18. ALBUTEROL HFA [Concomitant]
     Active Substance: ALBUTEROL SULFATE
  19. DITROBAN [Concomitant]
  20. FOSAMAX [Concomitant]
     Active Substance: ALENDRONATE SODIUM
  21. WARFARIN [Concomitant]
     Active Substance: WARFARIN
  22. TRIAMCINOLONE TOPICAL CREAM [Concomitant]
  23. BACLOFEN. [Concomitant]
     Active Substance: BACLOFEN
  24. MVI [Concomitant]
     Active Substance: VITAMINS
  25. KENALOG DENTAL PASTE [Concomitant]
  26. VITAMIN D3 [Concomitant]
     Active Substance: CHOLECALCIFEROL
  27. CLARITIN [Concomitant]
     Active Substance: LORATADINE
  28. SARNA ANTI ITCH [Concomitant]
  29. COLACE [Concomitant]
     Active Substance: DOCUSATE SODIUM
  30. SENNA [Concomitant]
     Active Substance: SENNA LEAF\SENNOSIDES\SENNOSIDES A AND B
  31. EFFEXOR [Concomitant]
     Active Substance: VENLAFAXINE HYDROCHLORIDE
  32. HUMULIN N [Concomitant]
     Active Substance: INSULIN HUMAN
  33. HUMULIN R [Concomitant]
     Active Substance: INSULIN HUMAN
  34. VANTIN [Concomitant]
     Active Substance: CEFPODOXIME PROXETIL
  35. VITAMIN B COMPLEX WITH C [Concomitant]
     Active Substance: ASCORBIC ACID\CALCIUM PANTOTHENATE\CYANOCOBALAMIN\NIACINAMIDE\PYRIDOXINE HYDROCHLORIDE\RIBOFLAVIN\THIAMINE MONONITRATE
  36. FAMOTIDINE. [Concomitant]
     Active Substance: FAMOTIDINE
  37. METOPROLOL. [Concomitant]
     Active Substance: METOPROLOL
  38. TYLENOL [Concomitant]
     Active Substance: ACETAMINOPHEN
  39. AMPYRA [Suspect]
     Active Substance: DALFAMPRIDINE
     Indication: MULTIPLE SCLEROSIS
     Route: 048
     Dates: start: 201605
  40. VENTOLIN INHL NEB SOLN [Concomitant]

REACTIONS (3)
  - Blood creatinine increased [None]
  - Albumin urine present [None]
  - Laboratory test abnormal [None]

NARRATIVE: CASE EVENT DATE: 20180810
